FAERS Safety Report 11058169 (Version 1)
Quarter: 2015Q2

REPORT INFORMATION
  Report Type: Spontaneous
  Country: US (occurrence: None)
  Receive Date: 20150422
  Receipt Date: 20150422
  Transmission Date: 20150821
  Serious: Yes (Other)
  Sender: FDA-Public Use
  Company Number: None

PATIENT
  Age: 10 Year
  Sex: Female
  Weight: 52.16 kg

DRUGS (6)
  1. FLOVENT [Concomitant]
     Active Substance: FLUTICASONE PROPIONATE
  2. FLONASE [Concomitant]
     Active Substance: FLUTICASONE PROPIONATE
  3. FLINTSTONES COMPLETE CHEWABLE TABLETS [Concomitant]
  4. ACETAMINOPHEN. [Suspect]
     Active Substance: ACETAMINOPHEN
     Indication: EAR INFECTION
     Dosage: 3 PILLS
     Route: 048
     Dates: start: 20150414, end: 20150415
  5. ACETAMINOPHEN. [Suspect]
     Active Substance: ACETAMINOPHEN
     Indication: PAIN
     Dosage: 3 PILLS
     Route: 048
     Dates: start: 20150414, end: 20150415
  6. SUBLINGUAL ALLERGY DROPS [Concomitant]

REACTIONS (2)
  - Product quality issue [None]
  - Abdominal pain upper [None]

NARRATIVE: CASE EVENT DATE: 20150415
